FAERS Safety Report 7020457-X (Version None)
Quarter: 2010Q3

REPORT INFORMATION
  Report Type: 
  Country: None (occurrence: None)
  Receive Date: 20100929
  Receipt Date: 20100917
  Transmission Date: 20110219
  Serious: Yes (Death)
  Sender: FDA-Public Use
  Company Number: NL-ROCHE-716938

PATIENT

DRUGS (2)
  1. FLUOROPYRIMIDINE NOS (NON-ROCHE/NON-COMPARATOR) [Suspect]
     Indication: PRODUCT USED FOR UNKNOWN INDICATION
     Dosage: DRUG NAME: FLUORPYRIMIDINE DRUG (NOT FURTHER SPECIFIED).
     Route: 048
  2. XELODA [Suspect]

REACTIONS (1)
  - DEATH [None]
